FAERS Safety Report 13475657 (Version 3)
Quarter: 2018Q1

REPORT INFORMATION
  Report Type: Report from Study
  Country: US (occurrence: US)
  Receive Date: 20170424
  Receipt Date: 20180115
  Transmission Date: 20180508
  Serious: No
  Sender: FDA-Public Use
  Company Number: US-AMGEN-USASL2017013066

PATIENT
  Age: 47 Year
  Sex: Male

DRUGS (2)
  1. REPATHA [Suspect]
     Active Substance: EVOLOCUMAB
     Indication: LOW DENSITY LIPOPROTEIN INCREASED
     Dosage: 140 MG,Q2WK
     Route: 065
  2. REPATHA [Suspect]
     Active Substance: EVOLOCUMAB
     Indication: HYPERLIPIDAEMIA

REACTIONS (2)
  - Flushing [Unknown]
  - Injection site pain [Unknown]
